FAERS Safety Report 15143512 (Version 1)
Quarter: 2018Q3

REPORT INFORMATION
  Report Type: Spontaneous
  Country: US (occurrence: US)
  Receive Date: 20180618
  Receipt Date: 20180618
  Transmission Date: 20181010
  Serious: Yes (Death)
  Sender: FDA-Public Use
  Company Number: None

PATIENT
  Age: 66 Year
  Sex: Male

DRUGS (1)
  1. PRALUENT [Suspect]
     Active Substance: ALIROCUMAB
     Indication: HYPERCHOLESTEROLAEMIA
     Dosage: 75 MG, 1 ML EVERY 14 DAYS SUBCUTANEOUS?          ?
     Route: 058
     Dates: start: 20171218, end: 20180602

REACTIONS (1)
  - Death [None]

NARRATIVE: CASE EVENT DATE: 20180602
